FAERS Safety Report 25613653 (Version 1)
Quarter: 2025Q3

REPORT INFORMATION
  Report Type: Spontaneous
  Country: JP (occurrence: JP)
  Receive Date: 20250728
  Receipt Date: 20250728
  Transmission Date: 20251021
  Serious: Yes (Hospitalization, Other)
  Sender: MERCK SHARP & DOHME LLC
  Company Number: JP-009507513-2312741

PATIENT
  Age: 71 Year
  Sex: Male

DRUGS (3)
  1. KEYTRUDA [Suspect]
     Active Substance: PEMBROLIZUMAB
     Indication: Non-small cell lung cancer stage II
     Route: 041
     Dates: start: 20241119, end: 20250204
  2. CISPLATIN [Suspect]
     Active Substance: CISPLATIN
     Indication: Non-small cell lung cancer stage II
     Route: 041
     Dates: start: 20241109, end: 20250204
  3. PEMETREXED [Suspect]
     Active Substance: PEMETREXED
     Indication: Non-small cell lung cancer stage II
     Route: 041
     Dates: start: 20241119, end: 20250204

REACTIONS (14)
  - Myelosuppression [Recovered/Resolved]
  - Drug eruption [Unknown]
  - Nausea [Recovered/Resolved]
  - Pneumonia [Recovering/Resolving]
  - Constipation [Recovered/Resolved]
  - Immune-mediated dermatitis [Unknown]
  - Quadriplegia [Recovering/Resolving]
  - Rash pruritic [Unknown]
  - Pyrexia [Unknown]
  - Cytokine release syndrome [Recovered/Resolved]
  - Decreased appetite [Recovered/Resolved]
  - Dermatitis acneiform [Recovered/Resolved]
  - Depressed level of consciousness [Recovering/Resolving]
  - Cytokine release syndrome [Unknown]

NARRATIVE: CASE EVENT DATE: 20241121
